FAERS Safety Report 5356860-3 (Version None)
Quarter: 2007Q2

REPORT INFORMATION
  Report Type: 
  Country: None (occurrence: None)
  Receive Date: 20070614
  Receipt Date: 20070309
  Transmission Date: 20071010
  Serious: No
  Sender: FDA-Public Use
  Company Number: US-ASTRAZENECA-2007UW04643

PATIENT
  Sex: Female

DRUGS (4)
  1. ATACAND [Suspect]
     Dosage: 1/2 TABLET
     Route: 048
  2. CARDIZEM [Concomitant]
  3. COUMADIN [Concomitant]
  4. LIPITOR [Concomitant]

REACTIONS (1)
  - ALOPECIA [None]
